FAERS Safety Report 8561196-3 (Version None)
Quarter: 2012Q3

REPORT INFORMATION
  Report Type: 
  Country: None (occurrence: None)
  Receive Date: 20120723
  Receipt Date: 20120713
  Transmission Date: 20120928
  Serious: Yes (Hospitalization)
  Sender: FDA-Public Use
  Company Number: DSA_58529_2012

PATIENT
  Sex: Female

DRUGS (6)
  1. FOLIC ACID [Concomitant]
  2. PREDNISOLONE [Concomitant]
  3. L-TIROXINE [Concomitant]
  4. COUMADIN [Concomitant]
  5. FLECAINIDE ACETATE [Concomitant]
  6. ACYCLOVIR [Suspect]
     Indication: ORAL HERPES
     Dosage: DF
     Dates: start: 20120625, end: 20120625

REACTIONS (2)
  - FACE OEDEMA [None]
  - LIP OEDEMA [None]
